FAERS Safety Report 14593248 (Version 1)
Quarter: 2018Q1

REPORT INFORMATION
  Report Type: Spontaneous
  Country: US (occurrence: US)
  Receive Date: 20180302
  Receipt Date: 20180302
  Transmission Date: 20180509
  Serious: Yes (Death)
  Sender: FDA-Public Use
  Company Number: US-PFIZER INC-2018088978

PATIENT
  Age: 74 Year
  Sex: Male
  Weight: 75 kg

DRUGS (2)
  1. RAPAMUNE [Suspect]
     Active Substance: SIROLIMUS
     Indication: LYMPHOMA
     Dosage: 1 MG, 1X/DAY
     Route: 048
  2. 70/30 NOVOLOG [Concomitant]

REACTIONS (2)
  - Product use in unapproved indication [Unknown]
  - Renal failure [Fatal]
